FAERS Safety Report 4660488-8 (Version None)
Quarter: 2005Q2

REPORT INFORMATION
  Report Type: 
  Country: None (occurrence: None)
  Receive Date: 20050512
  Receipt Date: 20050429
  Transmission Date: 20051028
  Serious: Yes (Hospitalization)
  Sender: FDA-Public Use
  Company Number: US-KINGPHARMUSA00001-K200500559

PATIENT
  Age: 36 Year
  Sex: Female

DRUGS (3)
  1. SONATA [Suspect]
     Dosage: 5 MG, (14 CAPSULES) SINGLE
     Route: 048
     Dates: start: 20050426, end: 20050426
  2. TAVOR [Suspect]
     Dosage: 1 MG, (3 TABLETS) SINGLE
     Route: 048
     Dates: start: 20050426, end: 20050426
  3. ATOSIL [Suspect]
     Dosage: 25 MG, (50 TABLETS) SINGLE
     Route: 048
     Dates: start: 20050426, end: 20050426

REACTIONS (3)
  - HALLUCINATION [None]
  - INTENTIONAL MISUSE [None]
  - OVERDOSE [None]
